FAERS Safety Report 14044944 (Version 1)
Quarter: 2017Q4

REPORT INFORMATION
  Report Type: Spontaneous
  Country: US (occurrence: US)
  Receive Date: 20171005
  Receipt Date: 20171005
  Transmission Date: 20180321
  Serious: No
  Sender: FDA-Public Use
  Company Number: US-ARALEZ PHARMACEUTICALS R+D INC.-2017-ARA-000719

PATIENT
  Age: 91 Year
  Sex: Female

DRUGS (3)
  1. METOPROLOL SUCCINATE. [Suspect]
     Active Substance: METOPROLOL SUCCINATE
     Dosage: 25 MG, QD
     Route: 065
     Dates: start: 20170929, end: 20170929
  2. METOPROLOL SUCCINATE. [Suspect]
     Active Substance: METOPROLOL SUCCINATE
     Dosage: 12.5 MG, QD
     Route: 065
     Dates: start: 20170930
  3. METOPROLOL SUCCINATE. [Suspect]
     Active Substance: METOPROLOL SUCCINATE
     Indication: HYPERTENSION
     Dosage: 12.15 MG, QD
     Route: 065
     Dates: start: 20170927, end: 20170928

REACTIONS (2)
  - Drug dose omission [Not Recovered/Not Resolved]
  - Bowel movement irregularity [Unknown]

NARRATIVE: CASE EVENT DATE: 20170927
